FAERS Safety Report 20126717 (Version 1)
Quarter: 2021Q4

REPORT INFORMATION
  Report Type: Spontaneous
  Country: US (occurrence: None)
  Receive Date: 20211129
  Receipt Date: 20211129
  Transmission Date: 20220304
  Serious: Yes (Life-Threatening, Hospitalization)
  Sender: FDA-Public Use
  Company Number: None

PATIENT
  Age: 78 Year
  Sex: Male
  Weight: 84 kg

DRUGS (1)
  1. ENOXAPARIN SODIUM [Suspect]
     Active Substance: ENOXAPARIN SODIUM
     Route: 058
     Dates: start: 20211001, end: 20211019

REACTIONS (5)
  - Anticoagulation drug level below therapeutic [None]
  - Fall [None]
  - Traumatic haematoma [None]
  - COVID-19 [None]
  - Anaemia [None]

NARRATIVE: CASE EVENT DATE: 20211019
